FAERS Safety Report 8415792-4 (Version None)
Quarter: 2012Q2

REPORT INFORMATION
  Report Type: 
  Country: None (occurrence: None)
  Receive Date: 20120606
  Receipt Date: 20120530
  Transmission Date: 20120825
  Serious: Yes (Death, Other)
  Sender: FDA-Public Use
  Company Number: US-BAYER-2012-006494

PATIENT
  Age: 39 Year
  Sex: Female
  Weight: 92 kg

DRUGS (18)
  1. YAZ [Suspect]
     Dosage: UNK
     Dates: start: 20070201
  2. YASMIN [Suspect]
     Dosage: UNK
     Dates: start: 20090201, end: 20090501
  3. SYNTHROID [Concomitant]
     Indication: HYPOTHYROIDISM
     Dosage: UNK
     Dates: start: 20001101, end: 20100101
  4. PROVIGIL [Concomitant]
     Dosage: UNK
     Dates: start: 20080401, end: 20100101
  5. YASMIN [Suspect]
     Indication: MENORRHAGIA
     Dosage: UNK
     Dates: start: 20020501, end: 20060101
  6. YASMIN [Suspect]
     Dosage: UNK
     Dates: start: 20071001
  7. MAXAIR [Concomitant]
     Indication: ASTHMA
     Dosage: UNK
     Dates: start: 20001101, end: 20100101
  8. CLONAZEPAM [Concomitant]
     Dosage: UNK
     Dates: start: 20090101, end: 20100101
  9. YAZ [Suspect]
     Dosage: UNK
     Dates: start: 20090201, end: 20090501
  10. SEROQUEL [Concomitant]
  11. HYDROMORPHONE HYDROCHLORIDE [Concomitant]
  12. YAZ [Suspect]
     Indication: MENORRHAGIA
     Dosage: UNK
     Route: 048
     Dates: start: 20020501, end: 20060101
  13. ACETAMINOPHEN [Concomitant]
  14. YAZ [Suspect]
     Dosage: UNK
     Dates: start: 20071001
  15. YASMIN [Suspect]
     Dosage: UNK
     Dates: start: 20070201
  16. CYTOMEL [Concomitant]
     Dosage: UNK
     Dates: start: 20060901, end: 20100101
  17. CELEBREX [Concomitant]
  18. WELLBUTRIN [Concomitant]
     Dosage: UNK
     Dates: start: 20100101

REACTIONS (6)
  - PAIN [None]
  - CARDIAC ARREST [None]
  - INJURY [None]
  - EMOTIONAL DISTRESS [None]
  - VENOUS THROMBOSIS LIMB [None]
  - PULMONARY EMBOLISM [None]
